FAERS Safety Report 6449285-0 (Version None)
Quarter: 2009Q4

REPORT INFORMATION
  Report Type: 
  Country: None (occurrence: None)
  Receive Date: 20091112
  Receipt Date: 20090128
  Transmission Date: 20100525
  Serious: Yes (Other)
  Sender: FDA-Public Use
  Company Number: 09-014

PATIENT
  Age: 60 Year
  Sex: Female

DRUGS (5)
  1. AMITRIPTYLINE HCL (QUALITEST) [Suspect]
     Indication: DEPRESSION
     Dosage: 1/2 TAB P.O. HS    (SINGLE DOSE)
     Route: 048
     Dates: start: 20081229
  2. ATIVAN [Concomitant]
  3. PERCOCET [Concomitant]
  4. ZOCOR [Concomitant]
  5. ACCUPRIL [Concomitant]

REACTIONS (2)
  - FALL [None]
  - LIMB INJURY [None]
